FAERS Safety Report 5378715-0 (Version None)
Quarter: 2007Q3

REPORT INFORMATION
  Report Type: 
  Country: None (occurrence: None)
  Receive Date: 20070705
  Receipt Date: 20070625
  Transmission Date: 20080115
  Serious: Yes (Life-Threatening, Hospitalization)
  Sender: FDA-Public Use
  Company Number: B0460135A

PATIENT
  Age: 32 Year
  Sex: Male
  Weight: 63 kg

DRUGS (3)
  1. KIVEXA [Suspect]
     Route: 048
     Dates: start: 20061227, end: 20070131
  2. KALETRA [Suspect]
     Route: 048
     Dates: start: 20061227, end: 20070131
  3. ZOLPIDEM TARTRATE [Concomitant]
     Route: 065

REACTIONS (3)
  - DERMATITIS ALLERGIC [None]
  - HYPERSENSITIVITY [None]
  - SKIN EXFOLIATION [None]
